FAERS Safety Report 15902150 (Version 2)
Quarter: 2019Q1

REPORT INFORMATION
  Report Type: Report from Study
  Country: US (occurrence: US)
  Receive Date: 20190201
  Receipt Date: 20190220
  Transmission Date: 20190417
  Serious: Yes (Death, Hospitalization)
  Sender: FDA-Public Use
  Company Number: US-ACTELION-A-NJ2017-157137

PATIENT
  Age: 52 Year
  Sex: Male
  Weight: 112.47 kg

DRUGS (4)
  1. UPTRAVI [Suspect]
     Active Substance: SELEXIPAG
     Dosage: 800 MCG, BID
     Route: 048
  2. UPTRAVI [Suspect]
     Active Substance: SELEXIPAG
     Dosage: 600 MCG, BID
     Route: 048
  3. UPTRAVI [Suspect]
     Active Substance: SELEXIPAG
     Indication: PULMONARY ARTERIAL HYPERTENSION
     Dosage: 200 MCG, BID
     Route: 048
  4. SILDENAFIL CITRATE. [Concomitant]
     Active Substance: SILDENAFIL CITRATE

REACTIONS (13)
  - Death [Fatal]
  - Pain in jaw [Unknown]
  - Back pain [Unknown]
  - Blood pressure decreased [Unknown]
  - Somnolence [Unknown]
  - Weight decreased [Unknown]
  - Hospitalisation [Unknown]
  - Myalgia [Unknown]
  - Hypotension [Unknown]
  - Product dose omission [Unknown]
  - Arthralgia [Unknown]
  - Diarrhoea [Unknown]
  - Insomnia [Unknown]

NARRATIVE: CASE EVENT DATE: 201801
